FAERS Safety Report 10082132 (Version 1)
Quarter: 2014Q2

REPORT INFORMATION
  Report Type: Report from Study
  Country: US (occurrence: US)
  Receive Date: 20140416
  Receipt Date: 20140416
  Transmission Date: 20141212
  Serious: Yes (Disabling, Other)
  Sender: FDA-Public Use
  Company Number: US-BAYER-2014-053872

PATIENT
  Age: 60 Year
  Sex: Male

DRUGS (5)
  1. BETASERON [Suspect]
     Indication: SECONDARY PROGRESSIVE MULTIPLE SCLEROSIS
     Dosage: UNK
     Dates: start: 20111114, end: 20120915
  2. BETASERON [Suspect]
     Indication: SECONDARY PROGRESSIVE MULTIPLE SCLEROSIS
     Dosage: 8 MIU, QOD
     Route: 058
     Dates: start: 20130213
  3. ALEVE GELCAPS [Suspect]
     Indication: ARTHRALGIA
     Dosage: 2 DF, UNK
     Dates: start: 20140407
  4. ALEVE GELCAPS [Suspect]
     Indication: PREMEDICATION
  5. PRIMIDONE [Concomitant]

REACTIONS (2)
  - Hallucination [Recovered/Resolved]
  - Asthenia [Not Recovered/Not Resolved]
